FAERS Safety Report 5199077-8 (Version None)
Quarter: 2006Q4

REPORT INFORMATION
  Report Type: 
  Country: None (occurrence: None)
  Receive Date: 20060919
  Receipt Date: 20060517
  Transmission Date: 20070319
  Serious: Yes (Other)
  Sender: FDA-Public Use
  Company Number: HQWYE454122MAY06

PATIENT
  Age: 15 Year
  Sex: Male
  Weight: 68.1 kg

DRUGS (3)
  1. ADVIL [Suspect]
     Indication: HEADACHE
     Dosage: 2 CAPSULES DAILY, ORAL
     Route: 048
     Dates: start: 20060513, end: 20060515
  2. ADVIL [Suspect]
     Indication: MIGRAINE
     Dosage: 2 CAPSULES DAILY, ORAL
     Route: 048
     Dates: start: 20060513, end: 20060515
  3. ADVIL [Suspect]
     Indication: PYREXIA
     Dosage: 2 CAPSULES DAILY, ORAL
     Route: 048
     Dates: start: 20060513, end: 20060515

REACTIONS (2)
  - THERAPEUTIC RESPONSE UNEXPECTED [None]
  - URTICARIA [None]
